FAERS Safety Report 6110191-2 (Version None)
Quarter: 2009Q1

REPORT INFORMATION
  Report Type: 
  Country: None (occurrence: None)
  Receive Date: 20090309
  Receipt Date: 20090309
  Transmission Date: 20090719
  Serious: Yes (Life-Threatening)
  Sender: FDA-Public Use
  Company Number: None

PATIENT
  Sex: Male
  Weight: 81.3 kg

DRUGS (13)
  1. SIROLIMUS [Suspect]
     Indication: IMMUNOSUPPRESSION
     Dosage: 2MG QD PO
     Route: 048
     Dates: start: 20030514, end: 20050113
  2. SIROLIMUS [Suspect]
     Indication: TRANSPLANT
     Dosage: 2MG QD PO
     Route: 048
     Dates: start: 20030514, end: 20050113
  3. PROGRAF [Concomitant]
  4. PREDNISONE [Concomitant]
  5. METOPROLOL TARTRATE [Concomitant]
  6. FLUVASTATIN [Concomitant]
  7. SULFAMETHOXAZOLE AND TRIMETHOPRIM [Concomitant]
  8. CALCIUM CARBONATE [Concomitant]
  9. VIT D [Concomitant]
  10. MG OXIDE [Concomitant]
  11. LANSOPRAZOLE [Concomitant]
  12. DOXAZOSIN MESYLATE [Concomitant]
  13. FUROSEMIDE [Concomitant]

REACTIONS (1)
  - DEEP VEIN THROMBOSIS [None]
